FAERS Safety Report 6650410-7 (Version None)
Quarter: 2010Q1

REPORT INFORMATION
  Report Type: 
  Country: None (occurrence: None)
  Receive Date: 20100322
  Receipt Date: 20100311
  Transmission Date: 20100710
  Serious: Yes (Hospitalization)
  Sender: FDA-Public Use
  Company Number: SPV1-2010-00493

PATIENT
  Age: 77 Year
  Sex: Female

DRUGS (15)
  1. FOSRENOL [Suspect]
     Indication: HYPERPHOSPHATAEMIA
     Dosage: ORAL
     Route: 048
     Dates: end: 20100309
  2. AMPICILLIN SODIUM:CLOXACILLIN [Concomitant]
  3. ASPIRIN [Concomitant]
  4. OLMESARTAN MEDOXOMIL [Concomitant]
  5. LASIX [Concomitant]
  6. ALLOPURINOL [Concomitant]
  7. ADALAT CC [Concomitant]
  8. DOXAZOSIN MESYLATE [Concomitant]
  9. WYTENS 	/00658402/ (GUANABENZ ACETATE) [Concomitant]
  10. ALMARL (AROTINOLOL HYDROCHLORIDE) [Concomitant]
  11. DIOVAN [Concomitant]
  12. KALIMATE /00067701/ (SODIUM POLYSTYRENE SULFONATE) [Concomitant]
  13. LANSOPRAZOLE [Concomitant]
  14. RENAGEL [Concomitant]
  15. HEPARIN [Concomitant]

REACTIONS (4)
  - CONDITION AGGRAVATED [None]
  - FOREIGN BODY [None]
  - RENAL FAILURE CHRONIC [None]
  - WRONG TECHNIQUE IN DRUG USAGE PROCESS [None]
